FAERS Safety Report 10358403 (Version 1)
Quarter: 2014Q3

REPORT INFORMATION
  Report Type: Spontaneous
  Country: JP (occurrence: None)
  Receive Date: 20140730
  Receipt Date: 20140730
  Transmission Date: 20150326
  Serious: Yes (Death, Other)
  Sender: FDA-Public Use
  Company Number: 2014-JP-008226

PATIENT
  Age: 17 Year
  Sex: Female

DRUGS (4)
  1. DEXAMETHASONE (DEXAMETHASONE PHOSPHATE) [Concomitant]
  2. ASPARAGINESE [Suspect]
     Active Substance: ASPARAGINASE
     Indication: ACUTE LYMPHOCYTIC LEUKAEMIA
  3. VINCRISTLINE (VINCRISTLINE SULFATE) [Concomitant]
  4. BORTEZOMIB (BORTEZOMIB) [Suspect]
     Active Substance: BORTEZOMIB
     Indication: ACUTE LYMPHOCYTIC LEUKAEMIA
     Dosage: FOR 2 WEEKS

REACTIONS (4)
  - Bronchopulmonary aspergillosis [None]
  - Stem cell transplant [None]
  - Pancreatitis acute [None]
  - Acute lymphocytic leukaemia recurrent [None]
